FAERS Safety Report 9478755 (Version 4)
Quarter: 2013Q4

REPORT INFORMATION
  Report Type: Spontaneous
  Country: US (occurrence: US)
  Receive Date: 20130827
  Receipt Date: 20131111
  Transmission Date: 20140711
  Serious: Yes (Hospitalization, Disabling)
  Sender: FDA-Public Use
  Company Number: US-JNJFOC-20130812894

PATIENT
  Age: 86 Year
  Sex: Female

DRUGS (11)
  1. XARELTO [Suspect]
     Indication: CEREBROVASCULAR ACCIDENT PROPHYLAXIS
     Route: 048
  2. XARELTO [Suspect]
     Indication: CEREBROVASCULAR ACCIDENT PROPHYLAXIS
     Dosage: FOR 3 WEEKS
     Route: 048
     Dates: start: 20130709, end: 20130816
  3. XARELTO [Suspect]
     Indication: ATRIAL FIBRILLATION
     Route: 048
  4. XARELTO [Suspect]
     Indication: ATRIAL FIBRILLATION
     Dosage: FOR 3 WEEKS
     Route: 048
     Dates: start: 20130709, end: 20130816
  5. CARDIZEM CD [Suspect]
     Indication: HYPERTENSION
     Route: 065
  6. CARDIZEM CD [Suspect]
     Indication: ATRIAL FIBRILLATION
     Route: 065
  7. LOSARTAN [Suspect]
     Indication: HYPERTENSION
     Route: 065
  8. ASA [Suspect]
     Indication: ATRIAL FIBRILLATION
     Route: 065
  9. METOPROLOL [Suspect]
     Indication: HYPERTENSION
     Route: 065
  10. METOPROLOL [Suspect]
     Indication: ATRIAL FIBRILLATION
     Route: 065
  11. MOBIC [Suspect]
     Indication: JOINT ARTHROPLASTY
     Route: 065

REACTIONS (2)
  - Cerebrovascular accident [Recovered/Resolved with Sequelae]
  - Atrial fibrillation [Recovered/Resolved]
